FAERS Safety Report 4534554-1 (Version None)
Quarter: 2004Q4

REPORT INFORMATION
  Report Type: 
  Country: None (occurrence: None)
  Receive Date: 20041214
  Receipt Date: 20041020
  Transmission Date: 20050328
  Serious: No
  Sender: FDA-Public Use
  Company Number: 2004240765US

PATIENT
  Age: 64 Year
  Sex: Female
  Weight: 86.2 kg

DRUGS (8)
  1. BEXTRA [Suspect]
     Dosage: 10 MG, QD, ORAL
     Route: 048
     Dates: start: 20041009, end: 20041016
  2. AMITRIPTYLINE [Concomitant]
  3. PREMARIN [Concomitant]
  4. CLONAZEPAM [Concomitant]
  5. FUROSEMIDE [Concomitant]
  6. LESCOL [Concomitant]
  7. METOPROLOL [Concomitant]
  8. TYLENOL [Concomitant]

REACTIONS (2)
  - ANXIETY [None]
  - FURUNCLE [None]
